FAERS Safety Report 8138777-4 (Version None)
Quarter: 2012Q1

REPORT INFORMATION
  Report Type: 
  Country: None (occurrence: None)
  Receive Date: 20120215
  Receipt Date: 20120213
  Transmission Date: 20120608
  Serious: Yes (Other)
  Sender: FDA-Public Use
  Company Number: ZA-GLAXOSMITHKLINE-B0781452A

PATIENT
  Age: 11 Year

DRUGS (2)
  1. SINGULAIR [Concomitant]
  2. FLUTICASONE PROPIONATE [Suspect]
     Indication: ASTHMA
     Route: 065
     Dates: start: 20110701

REACTIONS (1)
  - ASTHMA [None]
